FAERS Safety Report 8899323 (Version 1)
Quarter: 2012Q4

REPORT INFORMATION
  Report Type: 
  Country: US (occurrence: US)
  Receive Date: 20121108
  Receipt Date: 20121108
  Transmission Date: 20130627
  Serious: No
  Sender: FDA-Public Use
  Company Number: US-AMGEN-USASP2012033002

PATIENT
  Age: 41 Year
  Sex: Female
  Weight: 51.25 kg

DRUGS (8)
  1. ENBREL [Suspect]
     Indication: PRODUCT USED FOR UNKNOWN INDICATION
     Dosage: 25 mg, 2 times/wk
     Route: 058
  2. AMLODIPINE [Concomitant]
     Dosage: 2.5 mg, UNK
  3. BUPROPION [Concomitant]
     Dosage: 100 mg, UNK
  4. ZANTAC [Concomitant]
     Dosage: 150 mg, UNK
  5. VITAMIN D /00107901/ [Concomitant]
     Dosage: 100 IU, UNK
  6. VITAMIN C                          /00008001/ [Concomitant]
     Dosage: 500 mg, UNK
  7. VITAMIN B12                        /00056201/ [Concomitant]
  8. CLIMARA [Concomitant]
     Dosage: 0.025 mg, UNK

REACTIONS (5)
  - Abdominal discomfort [Recovered/Resolved]
  - Pain [Recovered/Resolved]
  - Nasopharyngitis [Recovered/Resolved]
  - Sinusitis [Recovered/Resolved]
  - Injection site pain [Not Recovered/Not Resolved]
